FAERS Safety Report 8313124-3 (Version None)
Quarter: 2012Q2

REPORT INFORMATION
  Report Type: 
  Country: None (occurrence: None)
  Receive Date: 20120426
  Receipt Date: 20120420
  Transmission Date: 20120825
  Serious: Yes (Death)
  Sender: FDA-Public Use
  Company Number: JP-PFIZER INC-2012086857

PATIENT
  Age: 59 Year
  Sex: Female
  Weight: 42 kg

DRUGS (12)
  1. TEMSIROLIMUS [Suspect]
     Dosage: 15 MG, WEEKLY
     Route: 042
     Dates: start: 20120124, end: 20120207
  2. MAGMITT [Concomitant]
     Dosage: 750 MG, 3X/DAY
     Route: 048
     Dates: start: 20110902
  3. TEMSIROLIMUS [Suspect]
     Dosage: 25 MG, WEEKLY
     Route: 042
     Dates: start: 20111004
  4. POLARAMINE [Concomitant]
     Dosage: 5 MG, 1X/DAY
     Route: 042
  5. TEMSIROLIMUS [Suspect]
     Dosage: 25 MG, WEEKLY
     Route: 042
     Dates: start: 20111011, end: 20111101
  6. TEMSIROLIMUS [Suspect]
     Dosage: 20 MG, WEEKLY
     Route: 042
     Dates: start: 20111122, end: 20111227
  7. MOBIC [Concomitant]
     Dosage: 10 MG, 1X/DAY
     Route: 048
     Dates: start: 20110902
  8. LANSOPRAZOLE [Concomitant]
     Dosage: 15 MG, 1X/DAY
     Dates: start: 20110902
  9. TEMSIROLIMUS [Suspect]
     Indication: RENAL CELL CARCINOMA
     Dosage: 25 MG, WEEKLY
     Route: 042
     Dates: start: 20110913
  10. TEMSIROLIMUS [Suspect]
     Dosage: 25 MG, WEEKLY
     Route: 042
     Dates: start: 20110920
  11. TEMSIROLIMUS [Suspect]
     Dosage: 25 MG, WEEKLY
     Route: 042
     Dates: start: 20110927
  12. FERROUS CITRATE [Concomitant]
     Dosage: 100 MG, 2X/DAY
     Dates: start: 20110912

REACTIONS (1)
  - DEATH [None]
